FAERS Safety Report 4504724-7 (Version None)
Quarter: 2004Q4

REPORT INFORMATION
  Report Type: 
  Country: None (occurrence: None)
  Receive Date: 20041118
  Receipt Date: 20030605
  Transmission Date: 20050328
  Serious: Yes (Other)
  Sender: FDA-Public Use
  Company Number: US-MERCK-0306USA00730

PATIENT
  Age: 49 Year
  Sex: Female

DRUGS (2)
  1. VIOXX [Suspect]
     Indication: ARTHRITIS
     Route: 048
     Dates: start: 20000101
  2. PRILOSEC [Concomitant]
     Route: 065

REACTIONS (6)
  - ANGINA PECTORIS [None]
  - BLOOD PRESSURE INCREASED [None]
  - CONVULSION [None]
  - COSTOCHONDRITIS [None]
  - ORTHOPNOEA [None]
  - PYREXIA [None]
